FAERS Safety Report 8493448-X (Version None)
Quarter: 2012Q2

REPORT INFORMATION
  Report Type: 
  Country: None (occurrence: None)
  Receive Date: 20120402
  Receipt Date: 20090915
  Transmission Date: 20120825
  Serious: Yes (Hospitalization)
  Sender: FDA-Public Use
  Company Number: PHEH2009US10138

PATIENT
  Age: 40 Year
  Sex: Male
  Weight: 97.5 kg

DRUGS (3)
  1. MULTIVITAMINS (ASCORBIC ACID, ERGOCALCIFEROL, FOLIC ACID, NICOTINAMIDE [Concomitant]
  2. ALPHA LIPOIC ACID (THIOCTIC ACID) [Concomitant]
  3. EXFORGE [Suspect]
     Indication: HYPERTENSION
     Dosage: 10/160 MG, QD, ORAL
     Route: 048
     Dates: start: 20090708, end: 20090712

REACTIONS (11)
  - MYALGIA [None]
  - MALAISE [None]
  - NEUTROPHIL COUNT INCREASED [None]
  - HYPERLIPIDAEMIA [None]
  - ABDOMINAL PAIN UPPER [None]
  - WHITE BLOOD CELL COUNT INCREASED [None]
  - HYPERCHOLESTEROLAEMIA [None]
  - HYPERGLYCAEMIA [None]
  - PAIN [None]
  - CHEST DISCOMFORT [None]
  - NEPHROLITHIASIS [None]
